FAERS Safety Report 17009237 (Version 1)
Quarter: 2019Q4

REPORT INFORMATION
  Report Type: Report from Study
  Country: IT (occurrence: IT)
  Receive Date: 20191108
  Receipt Date: 20191108
  Transmission Date: 20200122
  Serious: Yes (Hospitalization)
  Sender: FDA-Public Use
  Company Number: IT-GILEAD-2019-0436125

PATIENT
  Age: 74 Year
  Sex: Female

DRUGS (9)
  1. LYRICA [Concomitant]
     Active Substance: PREGABALIN
  2. ADALAT CRONO [Concomitant]
     Active Substance: NIFEDIPINE
  3. PARACETAMOL [Concomitant]
     Active Substance: ACETAMINOPHEN
  4. OMEPRAZEN [OMEPRAZOLE] [Concomitant]
     Active Substance: OMEPRAZOLE
  5. LAROXYL [Concomitant]
     Active Substance: AMITRIPTYLINE HYDROCHLORIDE
  6. DUROGESIC SMAT [Concomitant]
     Active Substance: FENTANYL
  7. TENOFOVIR DISOPROXIL FUMARATE. [Suspect]
     Active Substance: TENOFOVIR DISOPROXIL FUMARATE
     Indication: HEPATITIS B DNA INCREASED
     Dosage: 245 MG, QD
     Route: 048
     Dates: start: 20190917
  8. COUMADIN [Concomitant]
     Active Substance: WARFARIN SODIUM
  9. TRIATEC COMP [Concomitant]
     Active Substance: HYDROCHLOROTHIAZIDE\RAMIPRIL

REACTIONS (1)
  - Hypertransaminasaemia [Recovering/Resolving]

NARRATIVE: CASE EVENT DATE: 20191007
